FAERS Safety Report 7930756-2 (Version None)
Quarter: 2011Q4

REPORT INFORMATION
  Report Type: 
  Country: None (occurrence: None)
  Receive Date: 20111121
  Receipt Date: 20111117
  Transmission Date: 20120403
  Serious: Yes (Death, Hospitalization)
  Sender: FDA-Public Use
  Company Number: US-GLAXOSMITHKLINE-A0920347A

PATIENT
  Age: 91 Year
  Sex: Male
  Weight: 67.3 kg

DRUGS (2)
  1. PROMACTA [Suspect]
     Indication: IDIOPATHIC THROMBOCYTOPENIC PURPURA
     Dosage: 50MG PER DAY
     Route: 048
     Dates: start: 20090513
  2. PREDNISONE TAB [Concomitant]
     Route: 048

REACTIONS (6)
  - DIARRHOEA [None]
  - DEATH [None]
  - URETHRAL INJURY [None]
  - HAEMATURIA [None]
  - FAECAL INCONTINENCE [None]
  - PLATELET COUNT DECREASED [None]
